FAERS Safety Report 4344197-0 (Version None)
Quarter: 2004Q2

REPORT INFORMATION
  Report Type: 
  Country: None (occurrence: None)
  Receive Date: 20040422
  Receipt Date: 20040415
  Transmission Date: 20050107
  Serious: Yes (Other)
  Sender: FDA-Public Use
  Company Number: FR-BRISTOL-MYERS SQUIBB COMPANY-12562187

PATIENT
  Sex: Male

DRUGS (1)
  1. CARDIOLITE [Suspect]
     Indication: SCAN PARATHYROID
     Route: 042

REACTIONS (1)
  - RENAL FAILURE [None]
